FAERS Safety Report 6244790-4 (Version None)
Quarter: 2009Q2

REPORT INFORMATION
  Report Type: 
  Country: None (occurrence: None)
  Receive Date: 20090623
  Receipt Date: 20090623
  Transmission Date: 20091009
  Serious: No
  Sender: FDA-Public Use
  Company Number: None

PATIENT
  Age: 27 Year
  Sex: Female
  Weight: 68.0396 kg

DRUGS (2)
  1. ZICAM COLD REMEDY NASAL GEL [Suspect]
     Indication: NASOPHARYNGITIS
     Dosage: 2 SPRAYS 2 TIMS A DAY NASAL (3-5 DAYS WHEN I HAVE A CO
     Route: 045
  2. ZICAM ALLERGY RELIEF NASAL GEL [Suspect]
     Indication: SEASONAL ALLERGY
     Dosage: 2 SPRAYS ONCE A DAY FOR 2 Y

REACTIONS (2)
  - AGEUSIA [None]
  - ANOSMIA [None]
